FAERS Safety Report 10351773 (Version 1)
Quarter: 2014Q3

REPORT INFORMATION
  Report Type: Other
  Country: GB (occurrence: GB)
  Receive Date: 20140730
  Receipt Date: 20140730
  Transmission Date: 20150326
  Serious: Yes (Other)
  Sender: FDA-Public Use
  Company Number: GB-MYLAN-2014S1017124

PATIENT

DRUGS (2)
  1. CITALOPRAM [Suspect]
     Active Substance: CITALOPRAM HYDROBROMIDE
     Dosage: 40 MG,UNK
  2. TRAMADOL [Suspect]
     Active Substance: TRAMADOL
     Indication: ARTHRALGIA
     Dosage: 100 MG,UNK

REACTIONS (11)
  - Drug interaction [Unknown]
  - Accidental overdose [None]
  - Disorientation [Unknown]
  - Skin discolouration [Unknown]
  - Medication error [Unknown]
  - Muscle rigidity [Unknown]
  - Bruxism [Unknown]
  - Unresponsive to stimuli [Unknown]
  - Fall [Unknown]
  - Confusional state [Unknown]
  - Speech disorder [Unknown]
